FAERS Safety Report 23497657 (Version 1)
Quarter: 2024Q1

REPORT INFORMATION
  Report Type: Spontaneous
  Country: CN (occurrence: None)
  Receive Date: 20240208
  Receipt Date: 20240208
  Transmission Date: 20240410
  Serious: Yes (Hospitalization, Other)
  Sender: FDA-Public Use
  Company Number: 2024A028390

PATIENT
  Age: 21865 Day
  Sex: Female

DRUGS (4)
  1. DAPAGLIFLOZIN [Suspect]
     Active Substance: DAPAGLIFLOZIN
     Indication: Blood glucose decreased
     Route: 048
     Dates: start: 20240119, end: 20240122
  2. INSULIN DEGLUDEC\LIRAGLUTIDE [Concomitant]
     Active Substance: INSULIN DEGLUDEC\LIRAGLUTIDE
     Indication: Blood glucose decreased
     Dosage: 16.00 U, ONCE EVERY ONE DAY,
     Route: 058
     Dates: start: 20240118, end: 20240122
  3. SODIUM CHLORIDE [Concomitant]
     Active Substance: SODIUM CHLORIDE
     Dosage: 250.00 ML, ONCE EVERY ONE DAY
     Route: 041
     Dates: start: 20240116, end: 20240122
  4. KALLIDINOGENASE [Concomitant]
     Active Substance: KALLIDINOGENASE
     Indication: Diabetic retinopathy
     Dosage: 40.00 UNITS, ONCE EVERY ONE DAY,
     Route: 030
     Dates: start: 20240116, end: 20240122

REACTIONS (3)
  - Hypersensitivity [Recovered/Resolved]
  - Pruritus [Recovering/Resolving]
  - Rash [Recovering/Resolving]

NARRATIVE: CASE EVENT DATE: 20240121
